FAERS Safety Report 24282692 (Version 6)
Quarter: 2025Q3

REPORT INFORMATION
  Report Type: Spontaneous
  Country: US (occurrence: US)
  Receive Date: 20240904
  Receipt Date: 20250802
  Transmission Date: 20251021
  Serious: Yes (Hospitalization, Other)
  Sender: ALEXION PHARMACEUTICALS
  Company Number: 2024A195721

PATIENT
  Age: 72 Year
  Sex: Male
  Weight: 99.1 kg

DRUGS (12)
  1. WAINUA [Suspect]
     Active Substance: EPLONTERSEN
  2. ATORVASTATIN [Concomitant]
     Active Substance: ATORVASTATIN
  3. CELECOXIB [Concomitant]
     Active Substance: CELECOXIB
  4. EMPAGLIFLOZIN [Concomitant]
     Active Substance: EMPAGLIFLOZIN
  5. FUROSEMIDE [Concomitant]
     Active Substance: FUROSEMIDE
     Dosage: 40 MILLIGRAM, QD
     Route: 065
  6. GABAPENTIN [Concomitant]
     Active Substance: GABAPENTIN
     Dosage: 300 MILLIGRAM, BID
     Route: 065
  7. LISINOPRIL [Concomitant]
     Active Substance: LISINOPRIL
     Dosage: 20 MILLIGRAM, QD
     Route: 065
  8. OMEGA-3 FATTY ACIDS [Concomitant]
     Active Substance: OMEGA-3 FATTY ACIDS
     Dosage: 1000 MILLIGRAM, BID
  9. PIOGLITAZONE [Concomitant]
     Active Substance: PIOGLITAZONE
  10. POTASSIUM CHLORIDE [Concomitant]
     Active Substance: POTASSIUM CHLORIDE
     Route: 065
  11. TAFAMIDIS [Concomitant]
     Active Substance: TAFAMIDIS
     Dosage: 61 MILLIGRAM, QD
  12. VITAMIN B12 [Concomitant]
     Active Substance: CYANOCOBALAMIN
     Dosage: 1000 MICROGRAM, QD

REACTIONS (11)
  - Acute kidney injury [Not Recovered/Not Resolved]
  - Pleural effusion [Unknown]
  - Hyperkalaemia [Unknown]
  - Renal failure [Unknown]
  - Artery dissection [Unknown]
  - Glomerular vascular disorder [Unknown]
  - Glomerular filtration rate [Unknown]
  - Granular cell tumour [Unknown]
  - Increased appetite [Unknown]
  - Weight increased [Unknown]
  - Adverse event [Unknown]
